FAERS Safety Report 6468193-2 (Version None)
Quarter: 2009Q4

REPORT INFORMATION
  Report Type: 
  Country: None (occurrence: None)
  Receive Date: 20091127
  Receipt Date: 20091112
  Transmission Date: 20100525
  Serious: Yes (Hospitalization)
  Sender: FDA-Public Use
  Company Number: 2009AL000303

PATIENT
  Age: 28 Year
  Sex: Female

DRUGS (2)
  1. IRINOTECAN HYDROCHLORIDE (ATLLC) [Suspect]
     Indication: DRUG USE FOR UNKNOWN INDICATION
     Dates: start: 20081222
  2. CETUXIMAB [Concomitant]

REACTIONS (3)
  - COMPLEX PARTIAL SEIZURES [None]
  - ENCEPHALOPATHY [None]
  - HEADACHE [None]
